FAERS Safety Report 25900493 (Version 1)
Quarter: 2025Q4

REPORT INFORMATION
  Report Type: Spontaneous
  Country: EU (occurrence: EU)
  Receive Date: 20251009
  Receipt Date: 20251009
  Transmission Date: 20260118
  Serious: Yes (Other)
  Sender: MYLAN
  Company Number: EU-MYLANLABS-2025M1085772

PATIENT
  Age: 36 Year
  Sex: Male

DRUGS (6)
  1. DOCETAXEL [Suspect]
     Active Substance: DOCETAXEL
     Indication: Aesthesioneuroblastoma
     Dosage: UNK, SECOND LINE THERAPY
  2. CISPLATIN [Suspect]
     Active Substance: CISPLATIN
     Indication: Aesthesioneuroblastoma
     Dosage: UNK, FIRST LINE THERAPY
  3. IRINOTECAN [Suspect]
     Active Substance: IRINOTECAN
     Indication: Aesthesioneuroblastoma
     Dosage: UNK, SECOND LINE THERAPY
  4. ETOPOSIDE [Suspect]
     Active Substance: ETOPOSIDE
     Indication: Aesthesioneuroblastoma
     Dosage: UNK, FIRST LINE THERAPY
  5. DURVALUMAB [Suspect]
     Active Substance: DURVALUMAB
     Indication: Aesthesioneuroblastoma
     Dosage: UNK, FIRST LINE THERAPY
  6. TEMOZOLOMIDE [Suspect]
     Active Substance: TEMOZOLOMIDE
     Indication: Aesthesioneuroblastoma
     Dosage: UNK

REACTIONS (2)
  - Disease progression [Unknown]
  - Drug ineffective [Unknown]
